FAERS Safety Report 8599222-8 (Version None)
Quarter: 2012Q3

REPORT INFORMATION
  Report Type: 
  Country: None (occurrence: None)
  Receive Date: 20120816
  Receipt Date: 20120814
  Transmission Date: 20120928
  Serious: Yes (Hospitalization)
  Sender: FDA-Public Use
  Company Number: US-ROCHE-1102115

PATIENT
  Age: 60 Year
  Sex: Female
  Weight: 63.106 kg

DRUGS (1)
  1. XELODA [Suspect]
     Indication: COLORECTAL CANCER METASTATIC
     Route: 048
     Dates: start: 20120730

REACTIONS (2)
  - PYREXIA [None]
  - CHILLS [None]
